FAERS Safety Report 8815761 (Version 1)
Quarter: 2012Q4

REPORT INFORMATION
  Report Type: 
  Country: AU (occurrence: AU)
  Receive Date: 20120928
  Receipt Date: 20120928
  Transmission Date: 20130627
  Serious: Yes (Hospitalization, Other)
  Sender: FDA-Public Use
  Company Number: AU-B.I. PHARMACEUTICALS,INC./RIDGEFIELD-2012-AU-01637AU

PATIENT
  Age: 76 Year
  Sex: Male

DRUGS (2)
  1. PRADAXA [Suspect]
     Indication: ATRIAL FIBRILLATION
     Dosage: 110 mg
  2. PRADAXA [Suspect]
     Indication: ATRIAL FLUTTER

REACTIONS (3)
  - Renal failure acute [Unknown]
  - Cellulitis [Unknown]
  - Intentional drug misuse [Unknown]
